FAERS Safety Report 5479077-0 (Version None)
Quarter: 2007Q4

REPORT INFORMATION
  Report Type: 
  Country: None (occurrence: None)
  Receive Date: 20071006
  Receipt Date: 20070925
  Transmission Date: 20080405
  Serious: Yes (Hospitalization)
  Sender: FDA-Public Use
  Company Number: MX-PFIZER INC-2007081395

PATIENT
  Sex: Male
  Weight: 123 kg

DRUGS (1)
  1. SUTENT [Suspect]
     Route: 048
     Dates: start: 20070620, end: 20070918

REACTIONS (1)
  - PERIPHERAL SENSORY NEUROPATHY [None]
